FAERS Safety Report 8469267-7 (Version None)
Quarter: 2012Q2

REPORT INFORMATION
  Report Type: 
  Country: None (occurrence: None)
  Receive Date: 20120620
  Receipt Date: 20120604
  Transmission Date: 20120825
  Serious: Yes (Other)
  Sender: FDA-Public Use
  Company Number: FK201201585

PATIENT
  Age: 62 Year
  Sex: Female

DRUGS (2)
  1. FLUDARABINE PHOSPHATE [Suspect]
     Indication: NEUROPATHY PERIPHERAL
     Dosage: PER DAY: DAY 2-6
  2. RITUXIMAB (RITUXIMAB) [Suspect]
     Indication: NEUROPATHY PERIPHERAL
     Dosage: PER DAY: EVERY WEEK AND 4 CYCLES

REACTIONS (11)
  - LEUKOPENIA [None]
  - PERONEAL NERVE PALSY [None]
  - MUSCLE ATROPHY [None]
  - BLOOD IMMUNOGLOBULIN M DECREASED [None]
  - HYPOAESTHESIA [None]
  - MUSCULAR WEAKNESS [None]
  - NEUROPATHY PERIPHERAL [None]
  - WALDENSTROM'S MACROGLOBULINAEMIA [None]
  - NAUSEA [None]
  - ANAEMIA [None]
  - GAIT DISTURBANCE [None]
